FAERS Safety Report 8436497-X (Version None)
Quarter: 2012Q2

REPORT INFORMATION
  Report Type: 
  Country: None (occurrence: None)
  Receive Date: 20120614
  Receipt Date: 20120607
  Transmission Date: 20120825
  Serious: Yes (Death, Hospitalization)
  Sender: FDA-Public Use
  Company Number: US-GLAXOSMITHKLINE-A0843934A

PATIENT
  Age: 84 Year
  Sex: Female

DRUGS (1)
  1. AVANDIA [Suspect]
     Indication: TYPE 2 DIABETES MELLITUS
     Dosage: 4MG PER DAY
     Route: 065
     Dates: start: 20020621, end: 20050301

REACTIONS (10)
  - MYOCARDIAL INFARCTION [None]
  - DEATH [None]
  - PERICARDITIS [None]
  - ANGINA UNSTABLE [None]
  - PULMONARY EMBOLISM [None]
  - CARDIAC ARREST [None]
  - PERICARDIAL EFFUSION [None]
  - DEEP VEIN THROMBOSIS [None]
  - CARDIAC FAILURE CONGESTIVE [None]
  - CORONARY ARTERY DISEASE [None]
